FAERS Safety Report 8525412-6 (Version None)
Quarter: 2012Q3

REPORT INFORMATION
  Report Type: 
  Country: None (occurrence: None)
  Receive Date: 20120720
  Receipt Date: 20120719
  Transmission Date: 20120928
  Serious: No
  Sender: FDA-Public Use
  Company Number: US-B.I. PHARMACEUTICALS,INC./RIDGEFIELD-2011-BP-06084BP

PATIENT
  Sex: Female

DRUGS (6)
  1. PRADAXA [Suspect]
     Indication: ATRIAL FIBRILLATION
     Dosage: 300 MG
     Route: 048
     Dates: start: 20100701
  2. LOVASTATIN [Concomitant]
     Indication: BLOOD CHOLESTEROL INCREASED
     Dosage: 10 MG
     Route: 048
  3. OMEPRAZOLE [Concomitant]
     Indication: DYSPEPSIA
  4. LISINOPRIL [Concomitant]
     Indication: HYPERTENSION
     Route: 048
  5. MULTAQ [Concomitant]
     Indication: TACHYCARDIA
     Dosage: 800 MG
     Route: 048
     Dates: start: 20100701
  6. MULTAQ [Concomitant]
     Indication: ATRIAL FIBRILLATION

REACTIONS (6)
  - GINGIVAL BLEEDING [None]
  - DIZZINESS [None]
  - RASH MACULAR [None]
  - DYSPEPSIA [None]
  - HYPOTENSION [None]
  - EPISTAXIS [None]
